FAERS Safety Report 10627234 (Version 2)
Quarter: 2014Q4

REPORT INFORMATION
  Report Type: Spontaneous
  Country: JP (occurrence: JP)
  Receive Date: 20141204
  Receipt Date: 20141216
  Transmission Date: 20150529
  Serious: Yes (Hospitalization, Other)
  Sender: FDA-Public Use
  Company Number: JP-GLAXOSMITHKLINE-JP2014JPN027690

PATIENT
  Age: 64 Year
  Sex: Male

DRUGS (7)
  1. TEGRETOL [Suspect]
     Active Substance: CARBAMAZEPINE
     Indication: EPILEPSY
     Dosage: 200 MG, BID
     Route: 048
     Dates: start: 20140708, end: 20140727
  2. CARBAMAZEPINE. [Concomitant]
     Active Substance: CARBAMAZEPINE
     Dosage: 100 MG, BID
     Dates: start: 20140630, end: 20140707
  3. LAMICTAL [Suspect]
     Active Substance: LAMOTRIGINE
     Dosage: 25 MG, BID
     Route: 048
     Dates: start: 20140714, end: 20140727
  4. LAMICTAL [Suspect]
     Active Substance: LAMOTRIGINE
     Dosage: 50 MG, BID
     Route: 048
     Dates: start: 20140728, end: 20140807
  5. CARBAMAZEPINE. [Concomitant]
     Active Substance: CARBAMAZEPINE
     Indication: EPILEPSY
     Dosage: 50 MG, BID
     Dates: start: 20140629
  6. TEGRETOL [Suspect]
     Active Substance: CARBAMAZEPINE
     Dosage: 100 MG, BID
     Route: 048
     Dates: start: 20140728, end: 20140807
  7. LAMICTAL [Suspect]
     Active Substance: LAMOTRIGINE
     Indication: EPILEPSY
     Dosage: 25 MG, QD
     Route: 048
     Dates: start: 20140630, end: 20140713

REACTIONS (9)
  - Lip swelling [Recovering/Resolving]
  - Hyperthermia [Recovering/Resolving]
  - Rash [Recovering/Resolving]
  - Human herpesvirus 6 infection [Unknown]
  - Face oedema [Recovering/Resolving]
  - Hepatic function abnormal [Recovering/Resolving]
  - Cough [Recovering/Resolving]
  - Erythema [Recovering/Resolving]
  - Drug reaction with eosinophilia and systemic symptoms [Recovering/Resolving]

NARRATIVE: CASE EVENT DATE: 20140730
